FAERS Safety Report 9129698 (Version 1)
Quarter: 2013Q1

REPORT INFORMATION
  Report Type: Spontaneous
  Country: US (occurrence: US)
  Receive Date: 20130228
  Receipt Date: 20130228
  Transmission Date: 20140127
  Serious: No
  Sender: FDA-Public Use
  Company Number: US-ASTRAZENECA-2013SE10765

PATIENT
  Age: 63 Year
  Sex: Female
  Weight: 68 kg

DRUGS (4)
  1. NEXIUM [Suspect]
     Indication: HIATUS HERNIA
     Route: 048
     Dates: start: 2000
  2. PRILOSEC [Suspect]
     Route: 048
  3. LEVOROXIN [Concomitant]
     Indication: THYROID DISORDER
  4. CELEXA [Concomitant]
     Indication: DEPRESSION

REACTIONS (6)
  - Diabetes mellitus [Unknown]
  - Aphagia [Recovered/Resolved]
  - Abdominal discomfort [Recovered/Resolved]
  - Malaise [Recovered/Resolved]
  - Drug dose omission [Unknown]
  - Off label use [Unknown]
